FAERS Safety Report 10159259 (Version 1)
Quarter: 2014Q2

REPORT INFORMATION
  Report Type: Spontaneous
  Country: US (occurrence: US)
  Receive Date: 20140508
  Receipt Date: 20140508
  Transmission Date: 20141212
  Serious: Yes (Other)
  Sender: FDA-Public Use
  Company Number: US-JNJFOC-20140501203

PATIENT
  Sex: Female
  Weight: 54.42 kg

DRUGS (2)
  1. OLYSIO [Suspect]
     Indication: HEPATITIS C
     Route: 065
     Dates: start: 20140312, end: 20140423
  2. SOVALDI [Suspect]
     Indication: HEPATITIS C
     Route: 065
     Dates: start: 20140312, end: 20140423

REACTIONS (5)
  - Blood bilirubin increased [Unknown]
  - Blood alkaline phosphatase increased [Unknown]
  - Aspartate aminotransferase increased [Unknown]
  - International normalised ratio increased [Unknown]
  - Off label use [Recovered/Resolved]
